FAERS Safety Report 6773377-X (Version None)
Quarter: 2010Q2

REPORT INFORMATION
  Report Type: 
  Country: None (occurrence: None)
  Receive Date: 20100614
  Receipt Date: 20100604
  Transmission Date: 20101027
  Serious: Yes (Hospitalization)
  Sender: FDA-Public Use
  Company Number: UTC-001144

PATIENT
  Age: 52 Year
  Sex: Female

DRUGS (12)
  1. REMODULIN [Suspect]
     Indication: PULMONARY ARTERIAL HYPERTENSION
     Dosage: 47.52 UG/KG (0.033 UG/KG,1 IN 1 MIN),INTRAVENOUS
     Route: 042
     Dates: start: 20080101
  2. TRACLEER [Concomitant]
  3. COUMADIN [Concomitant]
  4. METFORMIN HCL [Concomitant]
  5. LASIX [Concomitant]
  6. LISINOPRIL [Concomitant]
  7. AMITRIPTYLINE HYDROCHLORIDE [Concomitant]
  8. OXYGEN (OXYGEN) [Concomitant]
  9. MULTIVITAMIN [Concomitant]
  10. REVATIO [Concomitant]
  11. PREVACID [Concomitant]
  12. IMODIUM [Concomitant]

REACTIONS (3)
  - DEVICE RELATED INFECTION [None]
  - JUGULAR VEIN THROMBOSIS [None]
  - STAPHYLOCOCCAL INFECTION [None]
